FAERS Safety Report 24959339 (Version 1)
Quarter: 2025Q1

REPORT INFORMATION
  Report Type: Spontaneous
  Country: NL (occurrence: NL)
  Receive Date: 20250212
  Receipt Date: 20250212
  Transmission Date: 20250409
  Serious: Yes (Hospitalization)
  Sender: TEVA
  Company Number: None

PATIENT
  Age: 76 Year
  Sex: Male
  Weight: 72 kg

DRUGS (1)
  1. ENALAPRIL [Suspect]
     Active Substance: ENALAPRIL
     Indication: Hypertension
     Dosage: 1 PIECE 2X PER DAY;  BRAND NAME NOT SPECIFIED
     Route: 048
     Dates: start: 20241028, end: 20241111

REACTIONS (1)
  - Swollen tongue [Recovered/Resolved]
